FAERS Safety Report 23809902 (Version 2)
Quarter: 2024Q2

REPORT INFORMATION
  Report Type: Report from Study
  Country: RU (occurrence: RU)
  Receive Date: 20240502
  Receipt Date: 20240524
  Transmission Date: 20240716
  Serious: Yes (Hospitalization)
  Sender: FDA-Public Use
  Company Number: RU-002147023-NVSC2024RU090787

PATIENT
  Age: 63 Year
  Sex: Female
  Weight: 56 kg

DRUGS (1)
  1. KISQALI [Suspect]
     Active Substance: RIBOCICLIB
     Indication: Breast cancer metastatic
     Dosage: 400 MG
     Route: 048
     Dates: start: 20230228, end: 20240125

REACTIONS (4)
  - Tooth abscess [Recovered/Resolved]
  - Swelling face [Unknown]
  - Joint stiffness [Unknown]
  - Pain in jaw [Unknown]

NARRATIVE: CASE EVENT DATE: 20240126
